FAERS Safety Report 4403862-7 (Version None)
Quarter: 2004Q3

REPORT INFORMATION
  Report Type: 
  Country: None (occurrence: None)
  Receive Date: 20040719
  Receipt Date: 20040705
  Transmission Date: 20050211
  Serious: Yes (Hospitalization)
  Sender: FDA-Public Use
  Company Number: 2004045578

PATIENT
  Age: 24 Year
  Sex: Female

DRUGS (1)
  1. CETIRIZINE HCL [Suspect]
     Indication: PRURITUS
     Dosage: ORAL
     Route: 048
     Dates: start: 20040401, end: 20040401

REACTIONS (4)
  - DRUG EXPOSURE DURING PREGNANCY [None]
  - INDUCED LABOUR [None]
  - INTRA-UTERINE DEATH [None]
  - NAUSEA [None]
